FAERS Safety Report 6309464-X (Version None)
Quarter: 2009Q3

REPORT INFORMATION
  Report Type: 
  Country: None (occurrence: None)
  Receive Date: 20090814
  Receipt Date: 20090813
  Transmission Date: 20100115
  Serious: Yes (Hospitalization, Other)
  Sender: FDA-Public Use
  Company Number: US-JNJFOC-20070302763

PATIENT
  Age: 75 Year
  Sex: Male
  Weight: 81.6 kg

DRUGS (22)
  1. NESERITIDE [Suspect]
     Indication: CARDIAC FAILURE CONGESTIVE
     Route: 042
  2. COLCHICINE [Suspect]
     Indication: GOUT
     Route: 048
  3. ALLOPURINOL [Suspect]
     Indication: GOUT
     Route: 048
  4. BISOPROLOL [Concomitant]
  5. CALCIUM ACETATE [Concomitant]
  6. COUMADIN [Concomitant]
  7. DIOVAN [Concomitant]
  8. EFUDEX [Concomitant]
  9. EPOGEN [Concomitant]
  10. HYDRALAZINE HCL [Concomitant]
  11. HYDROCODONE [Concomitant]
  12. LASIX [Concomitant]
  13. LORTAB [Concomitant]
  14. METOLAZONE [Concomitant]
  15. MUPIROCIN [Concomitant]
  16. NORVASC [Concomitant]
  17. PANTOPRAZOLE SODIUM [Concomitant]
  18. PAROXETINE HCL [Concomitant]
  19. PAXIL [Concomitant]
  20. PROTONIX [Concomitant]
  21. SULFA-RETARD [Concomitant]
  22. SYNTHROID [Concomitant]

REACTIONS (7)
  - CARDIAC FAILURE CONGESTIVE [None]
  - CELLULITIS [None]
  - CONDITION AGGRAVATED [None]
  - NEPHROPATHY TOXIC [None]
  - RENAL EMBOLISM [None]
  - RENAL FAILURE ACUTE [None]
  - RENAL TUBULAR NECROSIS [None]
